FAERS Safety Report 7998062-8 (Version None)
Quarter: 2011Q4

REPORT INFORMATION
  Report Type: 
  Country: None (occurrence: None)
  Receive Date: 20111221
  Receipt Date: 20101228
  Transmission Date: 20120403
  Serious: No
  Sender: FDA-Public Use
  Company Number: US-GLAXOSMITHKLINE-A0901681A

PATIENT
  Age: 66 Year
  Sex: Female

DRUGS (4)
  1. LOVAZA [Suspect]
     Indication: BLOOD TRIGLYCERIDES INCREASED
     Dosage: 2CAP TWICE PER DAY
     Route: 048
     Dates: start: 20100101
  2. PAXIL [Concomitant]
  3. PAIN MEDICATION (UNSPECIFIED) [Concomitant]
  4. TOPROL-XL [Concomitant]

REACTIONS (3)
  - DYSPHAGIA [None]
  - THERAPEUTIC RESPONSE DECREASED [None]
  - MEDICATION ERROR [None]
